FAERS Safety Report 6300247-3 (Version None)
Quarter: 2009Q3

REPORT INFORMATION
  Report Type: 
  Country: None (occurrence: None)
  Receive Date: 20090803
  Receipt Date: 20090727
  Transmission Date: 20100115
  Serious: Yes (Hospitalization)
  Sender: FDA-Public Use
  Company Number: D0062456A

PATIENT
  Sex: Female

DRUGS (4)
  1. WELLBUTRIN XL [Suspect]
     Dosage: 150 MG/ PER DAY/ ORAL
     Route: 048
     Dates: start: 20090701, end: 20090701
  2. MIRTAZAPINE [Suspect]
     Dosage: 15 MG/ PER DAY / ORAL
     Route: 048
  3. AMLODIPINE [Concomitant]
  4. LEVOTHYROXINE SODIUM [Concomitant]

REACTIONS (1)
  - ELECTROCARDIOGRAM QT PROLONGED [None]
